FAERS Safety Report 24863546 (Version 2)
Quarter: 2025Q1

REPORT INFORMATION
  Report Type: Spontaneous
  Country: JP (occurrence: JP)
  Receive Date: 20250120
  Receipt Date: 20250206
  Transmission Date: 20250409
  Serious: Yes (Other)
  Sender: BAUSCH AND LOMB
  Company Number: JP-BAUSCH-BL-2025-000694

PATIENT
  Age: 62 Year
  Sex: Female

DRUGS (7)
  1. BUDESONIDE [Suspect]
     Active Substance: BUDESONIDE
     Indication: Colitis ulcerative
     Route: 048
     Dates: start: 20241213, end: 20241227
  2. HERBALS [Concomitant]
     Active Substance: HERBALS
     Indication: Product used for unknown indication
  3. NEUROTROPIN [Concomitant]
     Active Substance: NEUROTROPIN
     Indication: Product used for unknown indication
  4. LIALDA [Concomitant]
     Active Substance: MESALAMINE
     Indication: Product used for unknown indication
     Dates: start: 20241115
  5. LIALDA [Concomitant]
     Active Substance: MESALAMINE
  6. PENTASA [Concomitant]
     Active Substance: MESALAMINE
     Indication: Product used for unknown indication
     Dates: start: 20241115
  7. MIROGABALIN BESYLATE [Concomitant]
     Active Substance: MIROGABALIN BESYLATE
     Indication: Product used for unknown indication

REACTIONS (1)
  - Eosinophilic pneumonia [Unknown]

NARRATIVE: CASE EVENT DATE: 20241201
